FAERS Safety Report 25125561 (Version 6)
Quarter: 2025Q3

REPORT INFORMATION
  Report Type: Spontaneous
  Country: US (occurrence: US)
  Receive Date: 20250326
  Receipt Date: 20250930
  Transmission Date: 20251021
  Serious: Yes (Other)
  Sender: UCB
  Company Number: US-UCBSA-2025017445

PATIENT
  Age: 67 Year
  Sex: Female
  Weight: 136 kg

DRUGS (4)
  1. RYSTIGGO [Suspect]
     Active Substance: ROZANOLIXIZUMAB-NOLI
     Indication: Myasthenia gravis
     Route: 058
     Dates: start: 20240301
  2. PREDNISONE [Suspect]
     Active Substance: PREDNISONE
     Indication: Myasthenia gravis
  3. PREDNISONE [Suspect]
     Active Substance: PREDNISONE
     Route: 048
  4. MESTINON [Concomitant]
     Active Substance: PYRIDOSTIGMINE BROMIDE
     Indication: Myasthenia gravis
     Dosage: (60-1 AND 90-2 IN DAY)  3X/DAY (TID)
     Route: 048
     Dates: start: 2016

REACTIONS (5)
  - Myasthenia gravis [Recovering/Resolving]
  - Neuropathy peripheral [Recovering/Resolving]
  - Balance disorder [Recovered/Resolved]
  - Pain [Not Recovered/Not Resolved]
  - Drug ineffective [Unknown]

NARRATIVE: CASE EVENT DATE: 20250110
